FAERS Safety Report 24732266 (Version 1)
Quarter: 2024Q4

REPORT INFORMATION
  Report Type: Spontaneous
  Country: US (occurrence: US)
  Receive Date: 20241213
  Receipt Date: 20241213
  Transmission Date: 20250115
  Serious: No
  Sender: RECKITT BENCKISER
  Company Number: US-PROD-AS2-212756134-20-24-USA-RB-0008870

PATIENT
  Age: 70 Year
  Sex: Female

DRUGS (1)
  1. DELSYM [Suspect]
     Active Substance: DEXTROMETHORPHAN
     Indication: Bronchial hyperreactivity
     Dosage: UNK
     Route: 048
     Dates: start: 20241003

REACTIONS (2)
  - Product use in unapproved indication [Unknown]
  - Product complaint [Unknown]

NARRATIVE: CASE EVENT DATE: 20241003
